FAERS Safety Report 8597688-0 (Version None)
Quarter: 2012Q3

REPORT INFORMATION
  Report Type: 
  Country: None (occurrence: None)
  Receive Date: 20120816
  Receipt Date: 20120808
  Transmission Date: 20120928
  Serious: Yes (Other)
  Sender: FDA-Public Use
  Company Number: US-PFIZER INC-2012194265

PATIENT
  Age: 50 Year
  Sex: Female
  Weight: 81.6 kg

DRUGS (5)
  1. PRISTIQ [Suspect]
     Indication: DEPRESSION
     Dosage: 50 MG, 1X/DAY
     Route: 048
     Dates: start: 20110101, end: 20120701
  2. ZYRTEC [Concomitant]
     Indication: HOUSE DUST ALLERGY
     Dosage: UNK, DAILY
  3. ZYRTEC [Concomitant]
     Indication: HYPERSENSITIVITY
  4. ASPIRIN [Concomitant]
     Indication: CARDIOVASCULAR EVENT PROPHYLAXIS
     Dosage: 81 MG, 1X/DAY
  5. ZYRTEC [Concomitant]
     Indication: ASTHMA

REACTIONS (8)
  - SLEEP DISORDER [None]
  - FEELING ABNORMAL [None]
  - FEELINGS OF WORTHLESSNESS [None]
  - DEPRESSED MOOD [None]
  - POST-TRAUMATIC STRESS DISORDER [None]
  - HYPERSOMNIA [None]
  - EATING DISORDER [None]
  - NERVOUSNESS [None]
